FAERS Safety Report 18299542 (Version 1)
Quarter: 2020Q3

REPORT INFORMATION
  Report Type: Spontaneous
  Country: US (occurrence: US)
  Receive Date: 20200922
  Receipt Date: 20200922
  Transmission Date: 20201103
  Serious: Yes (Hospitalization)
  Sender: FDA-Public Use
  Company Number: None

PATIENT
  Age: 57 Year
  Sex: Female
  Weight: 63.4 kg

DRUGS (3)
  1. ESTRING [Suspect]
     Active Substance: ESTRADIOL
     Indication: ATROPHIC VULVOVAGINITIS
     Route: 067
     Dates: start: 20140923, end: 20200824
  2. PROGESTERONE 100MG [Concomitant]
     Active Substance: PROGESTERONE
     Dates: start: 20200309
  3. LOSARTAN 25MG [Concomitant]
     Active Substance: LOSARTAN
     Dates: start: 20160728

REACTIONS (1)
  - Toxic shock syndrome [None]

NARRATIVE: CASE EVENT DATE: 20200824
